FAERS Safety Report 7548138-4 (Version None)
Quarter: 2011Q2

REPORT INFORMATION
  Report Type: 
  Country: None (occurrence: None)
  Receive Date: 20110615
  Receipt Date: 20110525
  Transmission Date: 20111010
  Serious: Yes (Death, Other)
  Sender: FDA-Public Use
  Company Number: US-BAYER-200940367NA

PATIENT
  Age: 69 Year
  Sex: Male
  Weight: 72.562 kg

DRUGS (18)
  1. TRASYLOL [Suspect]
     Indication: CAROTID ENDARTERECTOMY
  2. PLAVIX [Concomitant]
     Dosage: 75 MG, QD
     Route: 048
  3. LASIX [Concomitant]
     Dosage: UNK
     Dates: start: 20011009
  4. CELEBREX [Concomitant]
     Dosage: 200 MG, QD
     Route: 048
  5. ACTOS [Concomitant]
     Dosage: 30 MG, BID
     Route: 048
  6. MANNITOL [Concomitant]
     Dosage: UNK
     Dates: start: 20011009
  7. LOPRESSOR [Concomitant]
     Dosage: 100 MG, BID
     Route: 048
  8. HYZAAR [Concomitant]
     Dosage: 12.5 MG, BID
     Route: 048
  9. PLATELETS [Concomitant]
     Dosage: 6 U, UNK
     Route: 042
     Dates: start: 20011009, end: 20011009
  10. FRESH FROZEN PLASMA [Concomitant]
     Dosage: 2 U, UNK
     Route: 042
     Dates: start: 20011009, end: 20011009
  11. ACETYLSALICYLIC ACID SRT [Concomitant]
     Dosage: 81 MG, QD
     Route: 048
  12. ANCEF [Concomitant]
     Dosage: UNK
     Dates: start: 20011009
  13. HEPARIN [Concomitant]
     Dosage: UNK
     Dates: start: 20011009
  14. TRASYLOL [Suspect]
     Indication: CORONARY ARTERY BYPASS
     Dosage: UNK
     Route: 042
     Dates: start: 20011009
  15. CARDIZEM [Concomitant]
     Dosage: 300 MG, QD
     Route: 048
  16. AMICAR [Concomitant]
     Dosage: UNK
     Dates: start: 20011009
  17. SOLU-MEDROL [Concomitant]
     Dosage: UNK
     Dates: start: 20011009
  18. PROTAMINE SULFATE [Concomitant]
     Dosage: UNK
     Dates: start: 20011009

REACTIONS (13)
  - RENAL INJURY [None]
  - ANHEDONIA [None]
  - MULTI-ORGAN FAILURE [None]
  - ANXIETY [None]
  - RENAL FAILURE [None]
  - RENAL IMPAIRMENT [None]
  - PAIN [None]
  - INJURY [None]
  - UNEVALUABLE EVENT [None]
  - DEATH [None]
  - STRESS [None]
  - EMOTIONAL DISTRESS [None]
  - FEAR [None]
